FAERS Safety Report 9697457 (Version 1)
Quarter: 2013Q4

REPORT INFORMATION
  Report Type: Spontaneous
  Country: VE (occurrence: VE)
  Receive Date: 20131120
  Receipt Date: 20131120
  Transmission Date: 20140711
  Serious: Yes (Other)
  Sender: FDA-Public Use
  Company Number: PHHY2013VE131682

PATIENT
  Age: 73 Year
  Sex: Female

DRUGS (4)
  1. FORADIL [Suspect]
     Indication: CHRONIC OBSTRUCTIVE PULMONARY DISEASE
     Dosage: 12 UG, TID
     Route: 048
  2. CORAZEM [Concomitant]
     Dosage: UNK
  3. DIGOXIN [Concomitant]
     Dosage: UNK UKN, UNK
  4. OMEPRAZOLE [Concomitant]
     Dosage: UNK

REACTIONS (1)
  - Asthma [Not Recovered/Not Resolved]
